FAERS Safety Report 20858613 (Version 1)
Quarter: 2022Q2

REPORT INFORMATION
  Report Type: Spontaneous
  Country: US (occurrence: US)
  Receive Date: 20220522
  Receipt Date: 20220522
  Transmission Date: 20220721
  Serious: Yes (Other)
  Sender: FDA-Public Use
  Company Number: US-BRISTOL-MYERS SQUIBB COMPANY-2022-041316

PATIENT
  Age: 76 Year
  Sex: Male
  Weight: 90.72 kg

DRUGS (2)
  1. ELIQUIS [Suspect]
     Active Substance: APIXABAN
     Indication: Deep vein thrombosis
     Dosage: TWICE A DAY 2 TABS IN MORNING AND AT NIGHT FOR SEVEN DAYS  THEN ONE IN THE MORNING AND ONE AT NIGHT
     Route: 048
     Dates: start: 20220513
  2. ELIQUIS [Suspect]
     Active Substance: APIXABAN
     Indication: Calcinosis

REACTIONS (2)
  - Dizziness [Unknown]
  - Hyperglycaemia [Unknown]

NARRATIVE: CASE EVENT DATE: 20220513
